FAERS Safety Report 18606138 (Version 1)
Quarter: 2020Q4

REPORT INFORMATION
  Report Type: Spontaneous
  Country: JP (occurrence: JP)
  Receive Date: 20201211
  Receipt Date: 20201211
  Transmission Date: 20210114
  Serious: Yes (Hospitalization)
  Sender: FDA-Public Use
  Company Number: JP-CELGENEUS-JPN-20201201794

PATIENT
  Age: 61 Year
  Sex: Male
  Weight: 78 kg

DRUGS (44)
  1. FEXOFENADINE HYDROCHLORIDE. [Concomitant]
     Active Substance: FEXOFENADINE HYDROCHLORIDE
     Indication: INJECTION SITE REACTION
     Dosage: 120 MILLIGRAM
     Route: 048
     Dates: start: 20191018
  2. MEROPENEM HYDRATE [Concomitant]
     Active Substance: MEROPENEM
     Indication: PNEUMONIA
     Dosage: 2 GRAM
     Route: 041
     Dates: start: 20191106, end: 20191112
  3. INFLUENZA VACCINE [Concomitant]
     Active Substance: INFLUENZA VIRUS VACCINE
     Route: 058
     Dates: start: 20201104, end: 20201104
  4. FILGRASTIM [Concomitant]
     Active Substance: FILGRASTIM
     Indication: BLOOD STEM CELL HARVEST
     Dosage: 600 MICROGRAM
     Route: 041
     Dates: start: 20200103, end: 20200107
  5. L CARBOCISTEINE [Concomitant]
     Indication: INFLUENZA
     Dosage: 1500 MILLIGRAM
     Route: 048
     Dates: start: 20200123, end: 20200130
  6. CALONAL [Concomitant]
     Active Substance: ACETAMINOPHEN
     Indication: CANCER PAIN
     Route: 048
     Dates: start: 2019
  7. CALONAL [Concomitant]
     Active Substance: ACETAMINOPHEN
     Indication: INFLUENZA
     Route: 048
     Dates: start: 20200123, end: 20200124
  8. LANINAMIVIR OCTANOATE HYDRATE [Concomitant]
     Indication: INFLUENZA
     Route: 055
     Dates: start: 20200123, end: 20200123
  9. SCOPOLAMINE BUTYLBROMIDE [Concomitant]
     Active Substance: SCOPOLAMINE
     Indication: COLONOSCOPY
     Route: 030
     Dates: start: 20201007, end: 20201007
  10. DARATUMUMAB [Suspect]
     Active Substance: DARATUMUMAB
     Indication: PLASMA CELL MYELOMA
     Route: 058
     Dates: start: 20190917
  11. ACICLOVIR [Concomitant]
     Active Substance: ACYCLOVIR
     Indication: ANTIVIRAL PROPHYLAXIS
     Dosage: 200 MILLIGRAM
     Route: 048
     Dates: start: 20190917
  12. METHYCOBAL [Concomitant]
     Active Substance: METHYLCOBALAMIN
     Indication: PERIPHERAL SENSORY NEUROPATHY
     Dosage: 1500 MICROGRAM
     Route: 048
     Dates: start: 20200114
  13. AZ COMBINATION [Concomitant]
     Indication: INFECTION PROPHYLAXIS
     Route: 061
     Dates: start: 20191007
  14. LEVOFLOXACIN HEMIHYDRATE [Concomitant]
     Active Substance: LEVOFLOXACIN
     Indication: INFECTION PROPHYLAXIS
     Dosage: 500 MILLIGRAM
     Route: 048
     Dates: start: 20191112, end: 20200107
  15. CALCIUM GLUCONATE HYDRATE [Concomitant]
     Indication: PROPHYLAXIS
     Route: 041
     Dates: start: 20200107, end: 20200107
  16. CARBAZOCHROME SODIUM SULFONATE HYDRATE [Concomitant]
     Indication: GASTROINTESTINAL ENDOSCOPIC THERAPY
     Dosage: 100 MILLIGRAM
     Route: 041
     Dates: start: 20201208, end: 20201209
  17. CC-5013 [Suspect]
     Active Substance: LENALIDOMIDE
     Indication: PLASMA CELL MYELOMA
     Route: 048
     Dates: start: 20190917
  18. LENADEX [Suspect]
     Active Substance: DEXAMETHASONE ACETATE
     Indication: PLASMA CELL MYELOMA
     Route: 048
     Dates: start: 20190917
  19. BORTEZOMIB. [Suspect]
     Active Substance: BORTEZOMIB
     Indication: PLASMA CELL MYELOMA
     Route: 058
     Dates: start: 20190917, end: 20200302
  20. PREDNISOLONE. [Concomitant]
     Active Substance: PREDNISOLONE
     Indication: LIVER FUNCTION TEST INCREASED
     Dosage: 10 MILLIGRAM
     Route: 048
     Dates: start: 20191015, end: 20191028
  21. INFLUENZA VACCINE [Concomitant]
     Active Substance: INFLUENZA VIRUS VACCINE
     Indication: ANTIVIRAL PROPHYLAXIS
     Route: 041
     Dates: start: 20191224, end: 20191224
  22. SCOPOLAMINE BUTYLBROMIDE [Concomitant]
     Active Substance: SCOPOLAMINE
     Indication: GASTROINTESTINAL ENDOSCOPIC THERAPY
     Route: 041
     Dates: start: 20201208, end: 20201208
  23. MIDAZOLAM. [Concomitant]
     Active Substance: MIDAZOLAM
     Indication: GASTROINTESTINAL ENDOSCOPIC THERAPY
     Route: 041
     Dates: start: 20201208, end: 20201208
  24. RINDERON V [Concomitant]
     Active Substance: BETAMETHASONE VALERATE
     Indication: INJECTION SITE REACTION
     Route: 061
     Dates: start: 20191018
  25. PREDNISOLONE. [Concomitant]
     Active Substance: PREDNISOLONE
     Indication: RASH
     Dosage: 10 MILLIGRAM
     Route: 048
     Dates: start: 20200616
  26. SODIUM PICOSULFATE HYDRATE [Concomitant]
     Active Substance: SODIUM PICOSULFATE
     Indication: COLONOSCOPY
     Route: 048
     Dates: start: 20201006, end: 20201006
  27. SODIUM PICOSULFATE HYDRATE [Concomitant]
     Active Substance: SODIUM PICOSULFATE
     Indication: PROPHYLAXIS
     Route: 048
     Dates: start: 20201207, end: 20201207
  28. PARIET [Concomitant]
     Active Substance: RABEPRAZOLE SODIUM
     Indication: GASTRITIS PROPHYLAXIS
     Dosage: 10 MILLIGRAM
     Route: 048
     Dates: start: 20190917
  29. ZOLEDRONIC ACID HYDRATE [Concomitant]
     Active Substance: ZOLEDRONIC ACID
     Indication: PROPHYLAXIS
     Route: 041
     Dates: start: 20190930, end: 20191101
  30. MOVIPREP [Concomitant]
     Active Substance: ASCORBIC ACID\POLYETHYLENE GLYCOL 3350\POTASSIUM CHLORIDE\SODIUM ASCORBATE\SODIUM CHLORIDE\SODIUM SULFATE
     Indication: GASTROINTESTINAL ENDOSCOPIC THERAPY
     Route: 048
     Dates: start: 20201208, end: 20201208
  31. DAIPHEN [Concomitant]
     Active Substance: SULFAMETHOXAZOLE\TRIMETHOPRIM
     Indication: INFECTION PROPHYLAXIS
     Route: 048
     Dates: start: 20190918
  32. SOLDEM 3A [Concomitant]
     Active Substance: CARBOHYDRATES\POTASSIUM CHLORIDE\SODIUM CHLORIDE\SODIUM LACTATE
     Indication: PNEUMONIA
     Dosage: 500 MILLILITER
     Route: 041
     Dates: start: 20191105, end: 20191107
  33. LIDOCAINE. [Concomitant]
     Active Substance: LIDOCAINE
     Indication: BLOOD STEM CELL HARVEST
     Route: 061
     Dates: start: 20200107, end: 20200107
  34. BAYASPIRIN [Concomitant]
     Active Substance: ASPIRIN
     Indication: THROMBOSIS PROPHYLAXIS
     Dosage: 100 MILLIGRAM
     Route: 048
     Dates: start: 20190917
  35. RINDERON V [Concomitant]
     Active Substance: BETAMETHASONE VALERATE
     Indication: RASH
     Dosage: 1 FINGERTIP
     Route: 061
     Dates: start: 20190829, end: 20191017
  36. PREDNISOLONE. [Concomitant]
     Active Substance: PREDNISOLONE
     Indication: INJECTION SITE REACTION
     Dosage: 5 MILLIGRAM
     Route: 048
     Dates: start: 20191029, end: 20200122
  37. LACTEC INJECTION [Concomitant]
     Indication: PNEUMONIA
     Dosage: 500 MILLILITER
     Route: 041
     Dates: start: 20191105, end: 20191109
  38. CEFEPIME [Concomitant]
     Active Substance: CEFEPIME HYDROCHLORIDE
     Indication: PNEUMONIA
     Dosage: 6 GRAM
     Route: 041
     Dates: start: 20191105, end: 20191106
  39. LEVOFLOXACIN HEMIHYDRATE [Concomitant]
     Active Substance: LEVOFLOXACIN
     Indication: INFLUENZA
     Dosage: 500 MILLIGRAM
     Route: 048
     Dates: start: 20200123, end: 20200130
  40. DEXTROMETHORPHAN HYDROBROMIDE. [Concomitant]
     Active Substance: DEXTROMETHORPHAN HYDROBROMIDE
     Indication: INFLUENZA
     Dosage: 45 MILLIGRAM
     Route: 048
     Dates: start: 20200123, end: 20200130
  41. MOVIPREP [Concomitant]
     Active Substance: ASCORBIC ACID\POLYETHYLENE GLYCOL 3350\POTASSIUM CHLORIDE\SODIUM ASCORBATE\SODIUM CHLORIDE\SODIUM SULFATE
     Indication: COLONOSCOPY
     Route: 048
     Dates: start: 20201007, end: 20201007
  42. TRANEXAMIC ACID. [Concomitant]
     Active Substance: TRANEXAMIC ACID
     Indication: GASTROINTESTINAL ENDOSCOPIC THERAPY
     Dosage: 2000 MILLIGRAM
     Route: 041
     Dates: start: 20201208, end: 20201209
  43. CEFMETAZOLE SODIUM [Concomitant]
     Active Substance: CEFMETAZOLE SODIUM
     Indication: INFECTION PROPHYLAXIS
     Dosage: 1 GRAM
     Route: 041
     Dates: start: 20201208, end: 20201209
  44. PETHIDINE HYDROCHLORIDE [Concomitant]
     Active Substance: MEPERIDINE HYDROCHLORIDE
     Indication: GASTROINTESTINAL ENDOSCOPIC THERAPY
     Route: 041
     Dates: start: 20201208, end: 20201208

REACTIONS (1)
  - Large intestine polyp [Recovered/Resolved]

NARRATIVE: CASE EVENT DATE: 20201007
